FAERS Safety Report 16589484 (Version 1)
Quarter: 2019Q3

REPORT INFORMATION
  Report Type: Spontaneous
  Country: US (occurrence: US)
  Receive Date: 20190717
  Receipt Date: 20190717
  Transmission Date: 20191004
  Serious: Yes (Disabling)
  Sender: FDA-Public Use
  Company Number: None

PATIENT
  Age: 21 Year
  Sex: Male
  Weight: 65.25 kg

DRUGS (8)
  1. XYZAL [Concomitant]
     Active Substance: LEVOCETIRIZINE DIHYDROCHLORIDE
  2. RELIV [Concomitant]
  3. DIFFERIN [Concomitant]
     Active Substance: ADAPALENE
  4. ZZZQUIL NIGHTTIME SLEEP-AID [Concomitant]
     Active Substance: DIPHENHYDRAMINE HYDROCHLORIDE
  5. LITHIUM CARBONATE. [Suspect]
     Active Substance: LITHIUM CARBONATE
     Indication: DEPRESSION
     Dosage: ?          QUANTITY:1 CAPSULE(S);?
     Route: 048
  6. DOXYCYCLINE. [Concomitant]
     Active Substance: DOXYCYCLINE
  7. PREP [Concomitant]
  8. ALBUTERNOL [Concomitant]

REACTIONS (6)
  - Paradoxical drug reaction [None]
  - Depressed mood [None]
  - Emotional distress [None]
  - Scar [None]
  - Acne [None]
  - Swelling face [None]

NARRATIVE: CASE EVENT DATE: 20130201
